FAERS Safety Report 4633176-1 (Version None)
Quarter: 2005Q2

REPORT INFORMATION
  Report Type: 
  Country: None (occurrence: None)
  Receive Date: 20050411
  Receipt Date: 20050411
  Transmission Date: 20051028
  Serious: No
  Sender: FDA-Public Use
  Company Number: None

PATIENT
  Sex: Male
  Weight: 82 kg

DRUGS (5)
  1. DAUNOMYCIN [Suspect]
     Indication: ACUTE LYMPHOCYTIC LEUKAEMIA
     Dosage: 60 MG/M2 IVP ON DAYS 1, 8, 15, AND 22
     Route: 042
     Dates: start: 20050305
  2. VINCRISTINE SULFATE [Suspect]
     Dosage: 1.4 MG/M2 IVP ON DAYS 1, 8, 15 AND 22 NOTE: MAXIMUM DOSE 2 MG
     Route: 040
  3. PREDNISONE [Suspect]
     Dosage: 60 MG/M2 PO QD FOR 28 DAYS.
     Route: 048
  4. ELSPAR [Suspect]
     Dosage: 10000 UNIT/M2 IV OVER 30 MIN QD ON DAYS 17-28
     Route: 042
  5. METHOTREXATE [Suspect]
     Dosage: 12.5 MG IT ON DAYS 15 ONLY UNLESS PT. RECEIVE TREATMENT FOR CNS LEUKEMIA
     Route: 037

REACTIONS (11)
  - ACUTE RESPIRATORY DISTRESS SYNDROME [None]
  - AGITATION [None]
  - APNOEA [None]
  - HYPERMETABOLISM [None]
  - HYPOXIA [None]
  - LUNG INFILTRATION [None]
  - MENTAL STATUS CHANGES [None]
  - METABOLIC DISORDER [None]
  - PYREXIA [None]
  - RENAL FAILURE ACUTE [None]
  - RESPIRATORY FAILURE [None]
